FAERS Safety Report 7961901-0 (Version None)
Quarter: 2011Q4

REPORT INFORMATION
  Report Type: 
  Country: None (occurrence: None)
  Receive Date: 20111207
  Receipt Date: 20111206
  Transmission Date: 20120403
  Serious: Yes (Other)
  Sender: FDA-Public Use
  Company Number: JP-PFIZER INC-2011296793

PATIENT
  Age: 73 Year
  Sex: Male

DRUGS (3)
  1. LYRICA [Suspect]
     Dosage: 75 MG, 2X/DAY
     Route: 048
  2. RASILEZ [Concomitant]
     Dosage: UNK
  3. PLAVIX [Concomitant]
     Dosage: UNK

REACTIONS (1)
  - BLOOD PRESSURE INCREASED [None]
